FAERS Safety Report 5934845-3 (Version None)
Quarter: 2008Q4

REPORT INFORMATION
  Report Type: 
  Country: None (occurrence: None)
  Receive Date: 20081027
  Receipt Date: 20081016
  Transmission Date: 20090506
  Serious: Yes (Death)
  Sender: FDA-Public Use
  Company Number: 2008AL011287

PATIENT
  Sex: Female

DRUGS (1)
  1. DIGOXIN [Suspect]
     Dosage: 0.125MG, 3XWK, PO
     Route: 048
     Dates: start: 20040226, end: 20080330

REACTIONS (1)
  - THERAPEUTIC AGENT TOXICITY [None]
